FAERS Safety Report 6445415-5 (Version None)
Quarter: 2009Q4

REPORT INFORMATION
  Report Type: 
  Country: None (occurrence: None)
  Receive Date: 20091118
  Receipt Date: 20091106
  Transmission Date: 20100525
  Serious: Yes (Other)
  Sender: FDA-Public Use
  Company Number: PHHY2009BR48917

PATIENT
  Age: 82 Year
  Sex: Male

DRUGS (1)
  1. DIOVAN AMLO FIX [Suspect]
     Dosage: 1 TABLET (320/5 MG) DAILY
     Route: 048

REACTIONS (2)
  - LYMPHATIC DISORDER [None]
  - OEDEMA PERIPHERAL [None]
